FAERS Safety Report 21818531 (Version 1)
Quarter: 2023Q1

REPORT INFORMATION
  Report Type: Spontaneous
  Country: US (occurrence: None)
  Receive Date: 20230104
  Receipt Date: 20230104
  Transmission Date: 20230417
  Serious: No
  Sender: FDA-Public Use
  Company Number: None

PATIENT
  Age: 43 Year
  Sex: Female

DRUGS (1)
  1. MIRENA [Suspect]
     Active Substance: LEVONORGESTREL
     Indication: Dysmenorrhoea
     Dates: end: 20221227

REACTIONS (3)
  - Medical device site pain [None]
  - Vaginal haemorrhage [None]
  - Vaginal haemorrhage [None]

NARRATIVE: CASE EVENT DATE: 20230103
